FAERS Safety Report 9696729 (Version 2)
Quarter: 2015Q3

REPORT INFORMATION
  Report Type: Spontaneous
  Country: US (occurrence: US)
  Receive Date: 20131119
  Receipt Date: 20150803
  Transmission Date: 20151125
  Serious: No
  Sender: FDA-Public Use
  Company Number: US-GILEAD-2007-0014420

PATIENT
  Age: 51 Year
  Sex: Female
  Weight: 104.33 kg

DRUGS (7)
  1. ASPIRIN. [Concomitant]
     Active Substance: ASPIRIN
     Route: 048
  2. VITAMIN B12 [Concomitant]
     Active Substance: CYANOCOBALAMIN
     Route: 048
  3. NORETHINDRONE. [Concomitant]
     Active Substance: NORETHINDRONE
     Route: 048
  4. XOLAIR [Concomitant]
     Active Substance: OMALIZUMAB
     Route: 058
  5. LETAIRIS [Suspect]
     Active Substance: AMBRISENTAN
     Indication: PULMONARY ARTERIAL HYPERTENSION
     Route: 048
  6. HYDROCHLOROTHIAZIDE/LOSARTAN POTASSIUM [Concomitant]
     Route: 048
  7. SYNTHROID [Concomitant]
     Active Substance: LEVOTHYROXINE SODIUM
     Route: 048

REACTIONS (1)
  - Hypotension [Unknown]
